FAERS Safety Report 22532622 (Version 1)
Quarter: 2023Q2

REPORT INFORMATION
  Report Type: Spontaneous
  Country: DE (occurrence: DE)
  Receive Date: 20230607
  Receipt Date: 20230607
  Transmission Date: 20230721
  Serious: Yes (Hospitalization)
  Sender: FDA-Public Use
  Company Number: None

PATIENT
  Age: 16 Year
  Sex: Female
  Weight: 64 kg

DRUGS (4)
  1. LEVOTHYROXINE [Suspect]
     Active Substance: LEVOTHYROXINE
     Indication: Suicidal ideation
     Dosage: 8425 UG, QD (DAILY DOSE: 8425UG EVERY DAY)
     Route: 048
     Dates: start: 20191016, end: 20191017
  2. ALBUTEROL [Suspect]
     Active Substance: ALBUTEROL
     Indication: Suicidal ideation
     Dosage: UNK (120 HUB)
     Route: 055
     Dates: start: 20191016, end: 20191017
  3. LEVOTHYROXINE SODIUM [Concomitant]
     Active Substance: LEVOTHYROXINE SODIUM
     Indication: Hypothyroidism
     Dosage: 0.5 DF, QD , (DAILY DOSE: 0.5 DF DOSAGE FORM EVERY DAY)
     Route: 048
  4. ALBUTEROL [Concomitant]
     Active Substance: ALBUTEROL
     Indication: Asthma exercise induced
     Dosage: UNK
     Route: 055

REACTIONS (4)
  - Thyrotoxic crisis [Unknown]
  - General physical health deterioration [Unknown]
  - Hypokalaemia [Unknown]
  - Tachycardia [Unknown]

NARRATIVE: CASE EVENT DATE: 20191016
